FAERS Safety Report 9547347 (Version 1)
Quarter: 2013Q3

REPORT INFORMATION
  Report Type: Spontaneous
  Country: US (occurrence: US)
  Receive Date: 20130924
  Receipt Date: 20130924
  Transmission Date: 20140515
  Serious: Yes (Hospitalization, Other)
  Sender: FDA-Public Use
  Company Number: US-SANOFI-AVENTIS-2013SA092161

PATIENT
  Sex: Female

DRUGS (2)
  1. LANTUS [Suspect]
     Dosage: DOSE:100 UNIT(S)
     Route: 058
  2. NOVOLOG [Suspect]
     Route: 065

REACTIONS (8)
  - Blood potassium decreased [Unknown]
  - Blood glucose decreased [Recovered/Resolved]
  - Weight increased [Unknown]
  - Injection site mass [Unknown]
  - Local swelling [Unknown]
  - Blood glucose increased [Unknown]
  - Injection site pain [Unknown]
  - Injection site pruritus [Unknown]
